FAERS Safety Report 4478610-5 (Version None)
Quarter: 2004Q4

REPORT INFORMATION
  Report Type: 
  Country: None (occurrence: None)
  Receive Date: 20041014
  Receipt Date: 20040928
  Transmission Date: 20050328
  Serious: No
  Sender: FDA-Public Use
  Company Number: 2004222567US

PATIENT
  Age: 55 Year
  Sex: Male
  Weight: 103.9 kg

DRUGS (9)
  1. ZYVOX [Suspect]
     Indication: OSTEOMYELITIS
     Dosage: 600 MG, BID, IV
     Route: 042
     Dates: start: 20040530, end: 20040702
  2. ZOCOR [Concomitant]
  3. TOPROL-XL [Concomitant]
  4. THYROXINE ^APS^ (LEVOTHYROXINE SODIUM) [Concomitant]
  5. ACCUPRIL [Concomitant]
  6. ASPIRIN [Concomitant]
  7. FOLATE SODIUM (FOLATE SODIUM) [Concomitant]
  8. HUMULIN REGULAR (INSULIN HUMAN) [Concomitant]
  9. ACIDOPHILUS ^ZYMA^ [Concomitant]

REACTIONS (4)
  - MEDICATION ERROR [None]
  - OPTIC NEUROPATHY [None]
  - PARAESTHESIA [None]
  - VISUAL DISTURBANCE [None]
